FAERS Safety Report 9191269 (Version 1)
Quarter: 2013Q1

REPORT INFORMATION
  Report Type: Report from Study
  Country: GB (occurrence: GB)
  Receive Date: 20130326
  Receipt Date: 20130326
  Transmission Date: 20140127
  Serious: Yes (Congenital Anomaly)
  Sender: FDA-Public Use
  Company Number: GB-UCBSA-081379

PATIENT
  Sex: 0

DRUGS (4)
  1. LEVETIRACETAM [Suspect]
     Indication: EPILEPSY
     Dosage: DAILY DOSE : 1000
     Route: 064
  2. CLOBAZAM [Concomitant]
     Indication: EPILEPSY
     Route: 064
  3. LAMOTRIGINE [Concomitant]
     Indication: EPILEPSY
     Route: 064
  4. VALPROIC ACID [Concomitant]
     Indication: EPILEPSY
     Route: 064

REACTIONS (3)
  - Spina bifida [Unknown]
  - Hydrocephalus [Unknown]
  - Foetal exposure during pregnancy [Recovered/Resolved]
